FAERS Safety Report 5309432-0 (Version None)
Quarter: 2007Q2

REPORT INFORMATION
  Report Type: 
  Country: None (occurrence: None)
  Receive Date: 20070427
  Receipt Date: 20070417
  Transmission Date: 20071010
  Serious: Yes (Hospitalization)
  Sender: FDA-Public Use
  Company Number: JP-NOVOPROD-262587

PATIENT
  Age: 31 Year
  Sex: Female

DRUGS (2)
  1. NOVORAPID CHU [Suspect]
     Indication: DRUG USE FOR UNKNOWN INDICATION
     Dosage: 12 IU, QD
     Route: 058
     Dates: end: 20070409
  2. HUMALOG [Concomitant]
     Indication: DRUG USE FOR UNKNOWN INDICATION
     Dates: start: 20070409

REACTIONS (5)
  - DIARRHOEA [None]
  - DIZZINESS [None]
  - HEADACHE [None]
  - HYPERGLYCAEMIA [None]
  - HYPERSENSITIVITY [None]
